FAERS Safety Report 4816410-4 (Version None)
Quarter: 2005Q4

REPORT INFORMATION
  Report Type: 
  Country: None (occurrence: None)
  Receive Date: 20051028
  Receipt Date: 20051025
  Transmission Date: 20060501
  Serious: Yes (Hospitalization)
  Sender: FDA-Public Use
  Company Number: S05-FRA-02365-01

PATIENT
  Age: 73 Year
  Sex: Female

DRUGS (7)
  1. MONUROL [Suspect]
     Indication: URINARY TRACT INFECTION
     Dosage: 3 G ONCE PO
     Route: 048
     Dates: start: 20030929, end: 20030929
  2. PREVISCAN (FLUINDIONE) [Concomitant]
  3. THEOSTAT (THEOPHYLLINE) [Concomitant]
  4. ULTRALEVURE (SACCHAROMYCES BOULARDII) [Concomitant]
  5. SMECTA [Concomitant]
  6. PREDNISONE [Concomitant]
  7. DISOPYRAMIDE [Concomitant]

REACTIONS (2)
  - CLOSTRIDIUM COLITIS [None]
  - DISEASE RECURRENCE [None]
